FAERS Safety Report 18004620 (Version 1)
Quarter: 2020Q3

REPORT INFORMATION
  Report Type: Spontaneous
  Country: US (occurrence: US)
  Receive Date: 20200709
  Receipt Date: 20200709
  Transmission Date: 20201103
  Serious: No
  Sender: FDA-Public Use
  Company Number: US-NEOS THERAPEUTICS, LP-2019NEO00042

PATIENT
  Sex: Female

DRUGS (1)
  1. HYDROCODONE POLISTIREX AND CHLORPHENIRAMINE POLISTIREX [Suspect]
     Active Substance: CHLORPHENIRAMINE MALEATE\HYDROCODONE BITARTRATE
     Indication: COUGH
     Dosage: UNK

REACTIONS (3)
  - Therapeutic product ineffective [Not Recovered/Not Resolved]
  - Insomnia [Unknown]
  - Therapeutic response changed [Not Recovered/Not Resolved]
